FAERS Safety Report 9029084 (Version 5)
Quarter: 2013Q1

REPORT INFORMATION
  Report Type: Report from Study
  Country: FR (occurrence: FR)
  Receive Date: 20130122
  Receipt Date: 20130311
  Transmission Date: 20140127
  Serious: Yes (Other)
  Sender: FDA-Public Use
  Company Number: FR-ROCHE-1179235

PATIENT
  Age: 49 Year
  Sex: Female
  Weight: 54 kg

DRUGS (12)
  1. BEVACIZUMAB [Suspect]
     Indication: NON-SMALL CELL LUNG CANCER RECURRENT
     Dosage: DATE OF MOST RECENT DOSE PRIOR TO SAE 28/DEC/2012
     Route: 042
     Dates: start: 20121228
  2. PACLITAXEL [Suspect]
     Indication: NON-SMALL CELL LUNG CANCER RECURRENT
     Dosage: LAST DOSE OF PACLITAXEL:300 MG
     Route: 042
     Dates: start: 20121228
  3. CARBOPLATIN [Suspect]
     Indication: NON-SMALL CELL LUNG CANCER RECURRENT
     Route: 042
     Dates: start: 20121228
  4. SEROPLEX [Concomitant]
     Indication: ANXIETY
     Route: 048
     Dates: start: 20121220
  5. INEXIUM [Concomitant]
     Indication: NAUSEA
     Route: 048
     Dates: start: 20121220
  6. XANAX [Concomitant]
     Indication: ANXIETY
     Route: 048
     Dates: start: 20121220
  7. NOCTAMIDE [Concomitant]
     Indication: ANXIETY
     Route: 048
     Dates: start: 20121121
  8. OLMESARTAN MEDOXOMIL [Concomitant]
     Indication: HYPERTENSION
     Route: 048
     Dates: start: 2010
  9. AMLODIPINE [Concomitant]
     Indication: HYPERTENSION
     Route: 048
     Dates: start: 2010
  10. DOLIPRANE [Concomitant]
     Indication: ARTHRALGIA
     Route: 048
     Dates: start: 20130104, end: 20130204
  11. EFFEXOR [Concomitant]
     Indication: ANXIETY
     Route: 048
     Dates: start: 20130115, end: 20130205
  12. GDC-0941 (PI3K INHIBITOR) [Suspect]
     Indication: NON-SMALL CELL LUNG CANCER RECURRENT
     Dosage: MOST RECENT DOSE OF GDC-0941 (PI3K INHIBITOR):06/JAN/2012;LAST DOSE OF GDC-0941 (PI3K INHIBITOR):340
     Route: 048
     Dates: start: 20121228

REACTIONS (1)
  - Dermatitis allergic [Recovered/Resolved]
